FAERS Safety Report 24163607 (Version 2)
Quarter: 2024Q3

REPORT INFORMATION
  Report Type: Spontaneous
  Country: ES (occurrence: ES)
  Receive Date: 20240801
  Receipt Date: 20240829
  Transmission Date: 20241017
  Serious: Yes (Other)
  Sender: BAUSCH AND LOMB
  Company Number: ES-AGUETTANT-2024000961

PATIENT
  Age: 14 Year
  Sex: Female

DRUGS (5)
  1. VITAMIN K [Suspect]
     Active Substance: PHYTONADIONE
     Indication: Postoperative care
     Route: 065
  2. EPINEPHRINE [Suspect]
     Active Substance: EPINEPHRINE
     Indication: Hypersensitivity
     Route: 030
  3. DEXCHLORPHENIRAMINE [Suspect]
     Active Substance: DEXCHLORPHENIRAMINE
     Indication: Hypersensitivity
     Route: 042
  4. OXYGEN [Concomitant]
     Active Substance: OXYGEN
     Indication: Oxygen therapy
  5. SODIUM CHLORIDE [Concomitant]
     Active Substance: SODIUM CHLORIDE
     Indication: Hypersensitivity

REACTIONS (4)
  - Kounis syndrome [Recovered/Resolved]
  - Drug hypersensitivity [Unknown]
  - Contraindicated product administered [Unknown]
  - Therapy non-responder [Unknown]
